FAERS Safety Report 8545163 (Version 4)
Quarter: 2014Q1

REPORT INFORMATION
  Report Type: Spontaneous
  Country: US (occurrence: US)
  Receive Date: 20120503
  Receipt Date: 20140318
  Transmission Date: 20141002
  Serious: Yes (Hospitalization, Other)
  Sender: FDA-Public Use
  Company Number: US-ROCHE-792818

PATIENT
  Sex: Female
  Weight: 56.3 kg

DRUGS (2)
  1. ACCUTANE [Suspect]
     Indication: ACNE
     Route: 065
     Dates: start: 19860101, end: 19881231
  2. ACCUTANE [Suspect]
     Route: 065
     Dates: start: 1996, end: 1998

REACTIONS (8)
  - Colitis ulcerative [Unknown]
  - Depression [Unknown]
  - Inflammatory bowel disease [Unknown]
  - Back pain [Unknown]
  - Gallbladder disorder [Unknown]
  - Endometriosis [Unknown]
  - Bladder disorder [Unknown]
  - Irritable bowel syndrome [Unknown]
